FAERS Safety Report 6699522-2 (Version None)
Quarter: 2010Q2

REPORT INFORMATION
  Report Type: 
  Country: None (occurrence: None)
  Receive Date: 20100427
  Receipt Date: 20100427
  Transmission Date: 20101027
  Serious: Yes (Hospitalization)
  Sender: FDA-Public Use
  Company Number: None

PATIENT
  Age: 72 Year
  Sex: Male
  Weight: 75.4 kg

DRUGS (2)
  1. DIAZEPAM [Suspect]
     Indication: PAIN
     Dosage: 5 MG TID PO
     Route: 048
     Dates: start: 20100412, end: 20100419
  2. QUETIAPINE [Suspect]
     Dosage: 400 MG HS PO
     Route: 048
     Dates: start: 20100405, end: 20100419

REACTIONS (6)
  - DEPRESSED LEVEL OF CONSCIOUSNESS [None]
  - HEMIPARESIS [None]
  - MUSCLE SPASMS [None]
  - NO THERAPEUTIC RESPONSE [None]
  - SEDATION [None]
  - SOMNOLENCE [None]
